FAERS Safety Report 15085331 (Version 1)
Quarter: 2018Q2

REPORT INFORMATION
  Report Type: Spontaneous
  Country: FR (occurrence: FR)
  Receive Date: 20180628
  Receipt Date: 20180628
  Transmission Date: 20180711
  Serious: Yes (Hospitalization, Other)
  Sender: FDA-Public Use
  Company Number: FR-TEVA-2018-FR-915207

PATIENT
  Age: 71 Year
  Sex: Female

DRUGS (9)
  1. CARBAMAZEPINE. [Suspect]
     Active Substance: CARBAMAZEPINE
     Indication: SCHIZOPHRENIA
     Dosage: 200 MG, UNK
     Route: 048
  2. KEPPRA [Suspect]
     Active Substance: LEVETIRACETAM
     Route: 048
  3. TEGRETOL [Suspect]
     Active Substance: CARBAMAZEPINE
     Route: 065
  4. KEPPRA [Suspect]
     Active Substance: LEVETIRACETAM
     Indication: SCHIZOPHRENIA
     Route: 065
  5. AMLOR [Suspect]
     Active Substance: AMLODIPINE BESYLATE
     Indication: HYPERTENSION
     Dosage: UNK
     Route: 048
  6. ABILIFY [Suspect]
     Active Substance: ARIPIPRAZOLE
     Indication: SCHIZOPHRENIA
     Dosage: 40 MG, UNK
     Route: 048
     Dates: start: 200907
  7. TEGRETOL [Suspect]
     Active Substance: CARBAMAZEPINE
     Indication: EPILEPSY
     Dosage: UNK
     Route: 048
  8. ABILIFY [Suspect]
     Active Substance: ARIPIPRAZOLE
     Dosage: 30 MILLIGRAM DAILY;
     Route: 048
  9. ABILIFY [Suspect]
     Active Substance: ARIPIPRAZOLE
     Route: 048
     Dates: start: 200907

REACTIONS (8)
  - Neuroleptic malignant syndrome [Unknown]
  - Hypotension [Recovered/Resolved]
  - Blood creatine phosphokinase increased [Not Recovered/Not Resolved]
  - Myoglobin blood increased [Not Recovered/Not Resolved]
  - Restlessness [Unknown]
  - Musculoskeletal stiffness [Recovered/Resolved]
  - Myalgia [Recovered/Resolved]
  - Haematoma [Recovered/Resolved]

NARRATIVE: CASE EVENT DATE: 20090930
